FAERS Safety Report 6444588-8 (Version None)
Quarter: 2009Q4

REPORT INFORMATION
  Report Type: 
  Country: None (occurrence: None)
  Receive Date: 20091118
  Receipt Date: 20091008
  Transmission Date: 20100525
  Serious: No
  Sender: FDA-Public Use
  Company Number: A0810932A

PATIENT
  Age: 62 Year
  Sex: Male

DRUGS (3)
  1. COREG CR [Suspect]
     Indication: HYPERTENSION
     Dosage: 20MG PER DAY
     Route: 048
     Dates: start: 20091003
  2. WARFARIN SODIUM [Concomitant]
  3. DIURETIC [Concomitant]

REACTIONS (3)
  - FATIGUE [None]
  - SKIN ULCER [None]
  - TENSION [None]
